FAERS Safety Report 11742478 (Version 1)
Quarter: 2015Q4

REPORT INFORMATION
  Report Type: Spontaneous
  Country: None (occurrence: US)
  Receive Date: 20151116
  Receipt Date: 20151116
  Transmission Date: 20160304
  Serious: Yes (Hospitalization)
  Sender: FDA-Public Use
  Company Number: US-NSR_02156_2015

PATIENT
  Age: 66 Year
  Sex: Female

DRUGS (20)
  1. BACLOFEN. [Suspect]
     Active Substance: BACLOFEN
     Indication: MUSCLE RELAXANT THERAPY
     Dosage: DF [FREQUENCY UNKNOWN]
     Dates: start: 20150520, end: 20150521
  2. TEGRETOL [Concomitant]
     Active Substance: CARBAMAZEPINE
     Dosage: DF
  3. BETAINE [Concomitant]
     Active Substance: BETAINE
     Dosage: DF
  4. NEURONTIN [Concomitant]
     Active Substance: GABAPENTIN
     Dosage: DF
  5. BONIVA [Concomitant]
     Active Substance: IBANDRONATE SODIUM
     Dosage: DF
  6. ESTRATEST [Concomitant]
     Active Substance: ESTROGENS, ESTERIFIED\METHYLTESTOSTERONE
     Dosage: DF
  7. IMMUPLEX [Concomitant]
     Dosage: DF
  8. ADVIL [Concomitant]
     Active Substance: IBUPROFEN
     Dosage: DF
  9. OTHER ANALGESICS AND ANTIPYRETICS [Suspect]
     Active Substance: UNSPECIFIED INGREDIENT
     Indication: NERVE COMPRESSION
     Dosage: DF
  10. VERAPAMIL [Concomitant]
     Active Substance: VERAPAMIL HYDROCHLORIDE
     Dosage: DF
  11. PROVIGIL [Concomitant]
     Active Substance: MODAFINIL
     Dosage: DF
  12. AVONEX [Concomitant]
     Active Substance: INTERFERON BETA-1A
     Dosage: DF
  13. OMEGA 3 [Concomitant]
     Active Substance: OMEGA-3 FATTY ACIDS
     Dosage: DF
  14. MVI [Concomitant]
     Active Substance: VITAMINS
     Dosage: DF
  15. MINERALS NOS [Concomitant]
     Active Substance: MINERALS
     Dosage: DF
  16. CALCIUM [Concomitant]
     Active Substance: CALCIUM
     Dosage: DF
  17. CARDIO [Concomitant]
     Dosage: DF
  18. ECHINACEA [Concomitant]
     Active Substance: ECHINACEA, UNSPECIFIED
     Dosage: DF
  19. VESICARE [Concomitant]
     Active Substance: SOLIFENACIN SUCCINATE
     Dosage: DF
  20. JUICE CAP [Concomitant]
     Dosage: DF

REACTIONS (1)
  - Confusional state [Recovered/Resolved]

NARRATIVE: CASE EVENT DATE: 20150521
